FAERS Safety Report 7111054-6 (Version None)
Quarter: 2010Q4

REPORT INFORMATION
  Report Type: 
  Country: None (occurrence: None)
  Receive Date: 20101118
  Receipt Date: 20101105
  Transmission Date: 20110411
  Serious: Yes (Hospitalization, Other)
  Sender: FDA-Public Use
  Company Number: FR-CELGENEUS-056-21880-10110800

PATIENT
  Sex: Female
  Weight: 60 kg

DRUGS (16)
  1. REVLIMID [Suspect]
     Indication: MULTIPLE MYELOMA
     Route: 048
     Dates: start: 20100224
  2. REVLIMID [Suspect]
     Route: 048
     Dates: start: 20101006, end: 20101026
  3. DEXAMETHASONE [Suspect]
     Indication: MULTIPLE MYELOMA
     Route: 048
     Dates: start: 20100224, end: 20100323
  4. DEXAMETHASONE [Suspect]
     Route: 048
     Dates: start: 20100324, end: 20101102
  5. PREVISCAN [Concomitant]
     Indication: ANTICOAGULANT THERAPY
     Dosage: 1/4 AND 1/2
     Route: 065
  6. XANAX [Concomitant]
     Dosage: 0.25
     Route: 065
  7. IXPRIM [Concomitant]
     Dosage: 0.25
     Route: 065
  8. NEORECORMON ^ROCHE^ [Concomitant]
     Route: 058
  9. CALCIDOSE [Concomitant]
     Dosage: 2
     Route: 065
  10. TRIATEC [Concomitant]
  11. DIFFU K [Concomitant]
     Route: 048
     Dates: start: 20101016, end: 20101017
  12. ALPRAZOLAM [Concomitant]
     Indication: ANXIETY
     Route: 048
     Dates: start: 20101016, end: 20101016
  13. PARACETAMOL [Concomitant]
     Route: 048
     Dates: start: 20101016, end: 20101017
  14. PARACETAMOL [Concomitant]
     Indication: PAIN
  15. GLUCIDION [Concomitant]
     Route: 051
     Dates: start: 20101015, end: 20101017
  16. EPO [Concomitant]
     Route: 065

REACTIONS (2)
  - GENERAL PHYSICAL HEALTH DETERIORATION [None]
  - MUCOSAL INFLAMMATION [None]
